FAERS Safety Report 8521823-3 (Version None)
Quarter: 2012Q3

REPORT INFORMATION
  Report Type: 
  Country: None (occurrence: None)
  Receive Date: 20120719
  Receipt Date: 20120416
  Transmission Date: 20120928
  Serious: Yes (Other)
  Sender: FDA-Public Use
  Company Number: US-BRISTOL-MYERS SQUIBB COMPANY-16521817

PATIENT
  Age: 56 Year
  Sex: Male

DRUGS (3)
  1. YERVOY [Suspect]
     Indication: MALIGNANT MELANOMA
     Dates: start: 20110601
  2. YERVOY [Suspect]
     Indication: METASTASES TO CENTRAL NERVOUS SYSTEM
     Dates: start: 20110601
  3. YERVOY [Suspect]
     Indication: METASTASES TO LUNG
     Dates: start: 20110601

REACTIONS (2)
  - METASTASES TO CENTRAL NERVOUS SYSTEM [None]
  - RASH [None]
